FAERS Safety Report 9629747 (Version 2)
Quarter: 2013Q4

REPORT INFORMATION
  Report Type: Spontaneous
  Country: US (occurrence: US)
  Receive Date: 20131017
  Receipt Date: 20131105
  Transmission Date: 20140711
  Serious: Yes (Life-Threatening, Disabling)
  Sender: FDA-Public Use
  Company Number: US-GLAXOSMITHKLINE-A1045592A

PATIENT
  Age: 79 Year
  Sex: Female

DRUGS (9)
  1. VOTRIENT [Suspect]
     Indication: SOFT TISSUE CANCER
     Route: 048
     Dates: start: 20130523, end: 20130824
  2. AZITHROMYCIN [Concomitant]
  3. ASPIRIN [Concomitant]
  4. CIPRO [Concomitant]
  5. CRESTOR [Concomitant]
  6. LISINOPRIL [Concomitant]
  7. NORFLOXACIN [Concomitant]
  8. TOPROL XL [Concomitant]
  9. TYLENOL [Concomitant]

REACTIONS (1)
  - Hospice care [Unknown]
